FAERS Safety Report 4324038-8 (Version None)
Quarter: 2004Q1

REPORT INFORMATION
  Report Type: 
  Country: None (occurrence: None)
  Receive Date: 20040326
  Receipt Date: 20031210
  Transmission Date: 20041129
  Serious: No
  Sender: FDA-Public Use
  Company Number: US-GLAXOSMITHKLINE-A0442649A

PATIENT
  Age: 77 Year
  Sex: Female

DRUGS (6)
  1. ADVAIR DISKUS 100/50 [Suspect]
     Indication: ASTHMA
     Dosage: 1PUFF TWICE PER DAY
     Route: 055
  2. THEOPHYLLINE [Concomitant]
  3. CALCIUM [Concomitant]
  4. FOSAMAX [Concomitant]
  5. UNKNOWN MEDICATION [Concomitant]
  6. ALLEGRA [Concomitant]

REACTIONS (1)
  - ORAL CANDIDIASIS [None]
